FAERS Safety Report 8621657-5 (Version None)
Quarter: 2012Q3

REPORT INFORMATION
  Report Type: 
  Country: None (occurrence: None)
  Receive Date: 20120817
  Receipt Date: 20120817
  Transmission Date: 20120928
  Serious: No
  Sender: FDA-Public Use
  Company Number: None

PATIENT
  Age: 76 Year
  Sex: Female
  Weight: 92.5338 kg

DRUGS (1)
  1. PLAVIX [Suspect]
     Dosage: 75MG DAILY  PO
     Route: 048

REACTIONS (2)
  - DRUG INEFFECTIVE [None]
  - NAUSEA [None]
